FAERS Safety Report 17369603 (Version 1)
Quarter: 2020Q1

REPORT INFORMATION
  Report Type: Spontaneous
  Country: US (occurrence: US)
  Receive Date: 20200204
  Receipt Date: 20200204
  Transmission Date: 20200409
  Serious: No
  Sender: FDA-Public Use
  Company Number: US-MTPC-MTDA2020-0041615

PATIENT

DRUGS (10)
  1. RILUTEK [Concomitant]
     Active Substance: RILUZOLE
     Indication: PRODUCT USED FOR UNKNOWN INDICATION
     Dosage: UNK
     Route: 065
  2. GINKOBA [Concomitant]
     Active Substance: GINKGO
     Indication: PRODUCT USED FOR UNKNOWN INDICATION
     Dosage: UNK
     Route: 065
  3. GINSENG [Concomitant]
     Active Substance: ASIAN GINSENG
     Indication: PRODUCT USED FOR UNKNOWN INDICATION
     Dosage: UNK
     Route: 065
  4. LISINOPRIL. [Concomitant]
     Active Substance: LISINOPRIL
     Indication: PRODUCT USED FOR UNKNOWN INDICATION
     Dosage: UNK
     Route: 065
  5. ACETAMINOPHEN. [Concomitant]
     Active Substance: ACETAMINOPHEN
     Indication: PRODUCT USED FOR UNKNOWN INDICATION
     Dosage: AS NEEDED DURING RADICAVA INFUSION
     Route: 065
  6. VITAMIN E [Concomitant]
     Active Substance: .ALPHA.-TOCOPHEROL
     Indication: PRODUCT USED FOR UNKNOWN INDICATION
     Dosage: UNK
     Route: 065
  7. RADICAVA [Suspect]
     Active Substance: EDARAVONE
     Indication: AMYOTROPHIC LATERAL SCLEROSIS
     Dosage: 60 MILLIGRAM, QD FOR 14 DAYS FOLLOWED BY 14 DAYS OFF
     Route: 042
     Dates: start: 201912
  8. RADICAVA [Suspect]
     Active Substance: EDARAVONE
     Dosage: 60 MILLIGRAM, QD FOR 10 OUT OF 14 DAYS FOLLOWED BY 14 DAYS OFF
     Route: 042
     Dates: start: 201912
  9. MELOXICAM. [Concomitant]
     Active Substance: MELOXICAM
     Indication: PRODUCT USED FOR UNKNOWN INDICATION
     Dosage: UNK
     Route: 065
  10. DIPHENHYDRAMINE. [Concomitant]
     Active Substance: DIPHENHYDRAMINE
     Indication: PRODUCT USED FOR UNKNOWN INDICATION
     Dosage: AS NEEDED DURING RADICAVA INFUSION
     Route: 065

REACTIONS (2)
  - Therapeutic response decreased [Not Recovered/Not Resolved]
  - Asthenia [Not Recovered/Not Resolved]
